FAERS Safety Report 6210287-0 (Version None)
Quarter: 2009Q2

REPORT INFORMATION
  Report Type: 
  Country: None (occurrence: None)
  Receive Date: 20090527
  Receipt Date: 20090521
  Transmission Date: 20091009
  Serious: Yes (Life-Threatening)
  Sender: FDA-Public Use
  Company Number: 2007US002810

PATIENT
  Age: 65 Year
  Sex: Female
  Weight: 65 kg

DRUGS (7)
  1. ADENOSCAN [Suspect]
     Indication: SCAN MYOCARDIAL PERFUSION
     Dosage: 120 KG, IV NOS
     Route: 042
     Dates: start: 20071022, end: 20071022
  2. PAROXETINE MERCK (PAROXETINE HYDROCHLORIDE) [Concomitant]
  3. DRIED THYROID (THYROID) [Concomitant]
  4. THALLIUM (201 TL) (THALLIUM (201 TL)) [Concomitant]
  5. LEVOTHYROXINE SODIUM [Concomitant]
  6. TIZANIDINE HCL [Concomitant]
  7. BETAHISTINE MESILATE (BETAHISTINE MESILATE) [Concomitant]

REACTIONS (9)
  - ARTERIOSPASM CORONARY [None]
  - BLOOD PRESSURE IMMEASURABLE [None]
  - CORONARY ARTERY STENOSIS [None]
  - DYSPHORIA [None]
  - ELECTROCARDIOGRAM ST SEGMENT DEPRESSION [None]
  - ELECTROCARDIOGRAM ST SEGMENT ELEVATION [None]
  - ELECTROCARDIOGRAM T WAVE INVERSION [None]
  - HEART RATE DECREASED [None]
  - HYPOTENSION [None]
